FAERS Safety Report 8020697-7 (Version None)
Quarter: 2012Q1

REPORT INFORMATION
  Report Type: 
  Country: None (occurrence: None)
  Receive Date: 20120103
  Receipt Date: 20111223
  Transmission Date: 20120608
  Serious: Yes (Other)
  Sender: FDA-Public Use
  Company Number: US-ASTRAZENECA-2010SE08973

PATIENT
  Age: 59 Year
  Sex: Female

DRUGS (2)
  1. NEXIUM [Suspect]
     Route: 048
  2. SEROQUEL [Suspect]
     Route: 048
     Dates: start: 20000801

REACTIONS (27)
  - MOBILITY DECREASED [None]
  - MUSCULOSKELETAL CHEST PAIN [None]
  - BONE PAIN [None]
  - BARRETT'S OESOPHAGUS [None]
  - MAJOR DEPRESSION [None]
  - NAUSEA [None]
  - RIB FRACTURE [None]
  - DISTURBANCE IN ATTENTION [None]
  - AGITATION [None]
  - INSOMNIA [None]
  - HEADACHE [None]
  - REGURGITATION [None]
  - TACHYPHRENIA [None]
  - ARTHRALGIA [None]
  - TIBIA FRACTURE [None]
  - GAIT DISTURBANCE [None]
  - BLOOD TRIGLYCERIDES INCREASED [None]
  - PAIN [None]
  - FEELING OF BODY TEMPERATURE CHANGE [None]
  - BACK PAIN [None]
  - FEMUR FRACTURE [None]
  - FALL [None]
  - BONE DENSITY DECREASED [None]
  - FIBULA FRACTURE [None]
  - DEPRESSED MOOD [None]
  - VOMITING [None]
  - DRUG DOSE OMISSION [None]
